FAERS Safety Report 20843326 (Version 5)
Quarter: 2022Q4

REPORT INFORMATION
  Report Type: Spontaneous
  Country: CO (occurrence: CO)
  Receive Date: 20220518
  Receipt Date: 20221014
  Transmission Date: 20230113
  Serious: Yes (Other)
  Sender: FDA-Public Use
  Company Number: CO-PFIZER INC-202200348616

PATIENT
  Age: 44 Year
  Sex: Female

DRUGS (3)
  1. ENBREL [Suspect]
     Active Substance: ETANERCEPT
     Indication: Rheumatoid arthritis
     Dosage: 50 MILLIGRAM
     Route: 058
     Dates: start: 2017
  2. ENBREL [Suspect]
     Active Substance: ETANERCEPT
     Dosage: 50 MG, WEEKLY (EVERY 8 DAYS)
     Route: 058
     Dates: start: 201710, end: 202112
  3. ENBREL [Suspect]
     Active Substance: ETANERCEPT
     Dosage: 50 MILLIGRAM
     Route: 058
     Dates: start: 202208

REACTIONS (11)
  - Sjogren^s syndrome [Unknown]
  - Condition aggravated [Unknown]
  - Arthralgia [Not Recovered/Not Resolved]
  - Inflammation [Unknown]
  - Malaise [Unknown]
  - Depressed mood [Unknown]
  - Pigmentation disorder [Not Recovered/Not Resolved]
  - Alopecia [Unknown]
  - Joint stiffness [Unknown]
  - Off label use [Unknown]
  - Visual impairment [Unknown]

NARRATIVE: CASE EVENT DATE: 20171001
